FAERS Safety Report 24755125 (Version 1)
Quarter: 2024Q4

REPORT INFORMATION
  Report Type: Spontaneous
  Country: US (occurrence: US)
  Receive Date: 20241219
  Receipt Date: 20241219
  Transmission Date: 20250115
  Serious: Yes (Life-Threatening, Other)
  Sender: NOVARTIS
  Company Number: US-002147023-NVSC2024US240604

PATIENT
  Sex: Female

DRUGS (1)
  1. PROMACTA [Suspect]
     Active Substance: ELTROMBOPAG OLAMINE
     Indication: Product used for unknown indication
     Dosage: UNK
     Route: 065
     Dates: start: 202112

REACTIONS (9)
  - Feeling abnormal [Unknown]
  - Thrombocytopenia [Unknown]
  - Colitis [Unknown]
  - Growth retardation [Unknown]
  - Thrombosis [Unknown]
  - Immune system disorder [Unknown]
  - Dyspnoea [Unknown]
  - Asthenia [Unknown]
  - Platelet count decreased [Unknown]
